FAERS Safety Report 19742143 (Version 1)
Quarter: 2021Q3

REPORT INFORMATION
  Report Type: Spontaneous
  Country: PT (occurrence: PT)
  Receive Date: 20210825
  Receipt Date: 20210825
  Transmission Date: 20211014
  Serious: Yes (Hospitalization, Other)
  Sender: FDA-Public Use
  Company Number: PT-TEVA-2021-PT-1944440

PATIENT
  Age: 43 Year
  Sex: Female

DRUGS (4)
  1. VALPROIC ACID. [Suspect]
     Active Substance: VALPROIC ACID
     Indication: MANIA
     Dosage: 1000 MILLIGRAM DAILY;
     Route: 065
  2. ZIPRASIDONE. [Suspect]
     Active Substance: ZIPRASIDONE
     Indication: MANIA
     Dosage: 80 MILLIGRAM DAILY; IN 2 DOSES AFTER LUNCH AND DINNER
     Route: 065
  3. ARIPIPRAZOLE. [Suspect]
     Active Substance: ARIPIPRAZOLE
     Indication: MANIA
     Dosage: 30 MILLIGRAM DAILY;
     Route: 065
  4. DIAZEPAM. [Suspect]
     Active Substance: DIAZEPAM
     Indication: MANIA
     Dosage: 20 MILLIGRAM DAILY;
     Route: 065

REACTIONS (3)
  - Extrapyramidal disorder [Unknown]
  - Drug ineffective [Unknown]
  - Toxic skin eruption [Recovered/Resolved]
